FAERS Safety Report 13933293 (Version 1)
Quarter: 2017Q3

REPORT INFORMATION
  Report Type: Report from Study
  Country: US (occurrence: US)
  Receive Date: 20170904
  Receipt Date: 20170904
  Transmission Date: 20171127
  Serious: Yes (Hospitalization)
  Sender: FDA-Public Use
  Company Number: US-ASTRAZENECA-2017SE87185

PATIENT
  Age: 13605 Day
  Sex: Female
  Weight: 88.2 kg

DRUGS (3)
  1. MEDI4736 [Suspect]
     Active Substance: DURVALUMAB
     Indication: CERVIX CARCINOMA
     Route: 042
     Dates: start: 20170607, end: 20170620
  2. NOVOLOG [Concomitant]
     Active Substance: INSULIN ASPART
     Dates: start: 20170702
  3. LEVEMIR [Concomitant]
     Active Substance: INSULIN DETEMIR
     Dates: start: 20170702

REACTIONS (1)
  - Diabetic ketoacidosis [Recovered/Resolved]

NARRATIVE: CASE EVENT DATE: 20170813
